FAERS Safety Report 19161899 (Version 1)
Quarter: 2021Q2

REPORT INFORMATION
  Report Type: Spontaneous
  Country: US (occurrence: US)
  Receive Date: 20210421
  Receipt Date: 20210421
  Transmission Date: 20210717
  Serious: No
  Sender: FDA-Public Use
  Company Number: US-ORGANON-O2104USA001660

PATIENT
  Sex: Female

DRUGS (3)
  1. ALBUTEROL [SALBUTAMOL SULFATE] [Interacting]
     Active Substance: ALBUTEROL SULFATE
     Dosage: UNK
     Dates: start: 2019
  2. ASPERCREME PAIN RELIEVING [Interacting]
     Active Substance: TROLAMINE SALICYLATE
     Dosage: RUBBED ON HER KNEE
     Route: 061
  3. DULERA [Suspect]
     Active Substance: FORMOTEROL FUMARATE DIHYDRATE\MOMETASONE FUROATE
     Indication: ASTHMA
     Dosage: 4 PUFFS DAILY
     Dates: start: 2019

REACTIONS (2)
  - Drug interaction [Unknown]
  - Hypertension [Unknown]

NARRATIVE: CASE EVENT DATE: 2020
